FAERS Safety Report 25045500 (Version 1)
Quarter: 2025Q1

REPORT INFORMATION
  Report Type: Spontaneous
  Country: US (occurrence: None)
  Receive Date: 20250305
  Receipt Date: 20250305
  Transmission Date: 20250408
  Serious: Yes (Death)
  Sender: FDA-CTU
  Company Number: None

PATIENT
  Age: 75 Year
  Sex: Male

DRUGS (11)
  1. ENVARSUS XR [Suspect]
     Active Substance: TACROLIMUS
     Indication: Renal transplant
     Dosage: 2 MG DAILY ORAL
     Route: 048
  2. MYCOPHENOLIC ACID [Suspect]
     Active Substance: MYCOPHENOLIC ACID
     Indication: Renal transplant
     Dosage: 540 MG TWICE A DAY ORAL ?
     Route: 048
  3. AMLODIPINE BESYLATE [Concomitant]
     Active Substance: AMLODIPINE BESYLATE
  4. Benazepril 5mg [Concomitant]
  5. CALCITRIOL [Concomitant]
     Active Substance: CALCITRIOL
  6. CARVEDILOL [Concomitant]
     Active Substance: CARVEDILOL
  7. Levothyroxine 0.2mg [Concomitant]
  8. SIMVASTATIN [Concomitant]
     Active Substance: SIMVASTATIN
  9. FEXOFENADINE HYDROCHLORIDE [Concomitant]
     Active Substance: FEXOFENADINE HYDROCHLORIDE
  10. VITAMIN C [Concomitant]
     Active Substance: ASCORBIC ACID
  11. Vitamin D3 1,000 unit [Concomitant]

REACTIONS (2)
  - Urinary tract infection [None]
  - Septic shock [None]

NARRATIVE: CASE EVENT DATE: 20250204
